FAERS Safety Report 13430411 (Version 6)
Quarter: 2020Q2

REPORT INFORMATION
  Report Type: Spontaneous
  Country: US (occurrence: US)
  Receive Date: 20170412
  Receipt Date: 20200423
  Transmission Date: 20200713
  Serious: Yes (Death)
  Sender: FDA-Public Use
  Company Number: US-PFIZER INC-2017149872

PATIENT
  Age: 53 Year
  Sex: Male

DRUGS (3)
  1. REVATIO [Suspect]
     Active Substance: SILDENAFIL CITRATE
     Indication: PULMONARY ARTERIAL HYPERTENSION
     Dosage: 80 MG, 3X/DAY (TAKE 4 TABLETS BY MOUTH 3 TIMES DAILY)/ (TAKE DOSES AT LEAST 6 HOURS APART-ORAL)
     Route: 048
     Dates: start: 2009
  2. REMODULIN [Concomitant]
     Active Substance: TREPROSTINIL
     Dosage: UNK
     Dates: start: 2014
  3. REVATIO [Suspect]
     Active Substance: SILDENAFIL CITRATE
     Dosage: 20 MG

REACTIONS (3)
  - Malaise [Recovered/Resolved]
  - Off label use [Unknown]
  - Death [Fatal]

NARRATIVE: CASE EVENT DATE: 2009
